FAERS Safety Report 10778291 (Version 2)
Quarter: 2015Q3

REPORT INFORMATION
  Report Type: Spontaneous
  Country: US (occurrence: US)
  Receive Date: 20150209
  Receipt Date: 20150805
  Transmission Date: 20151125
  Serious: No
  Sender: FDA-Public Use
  Company Number: US-AMGEN-USASP2014082427

PATIENT
  Age: 82 Year
  Sex: Male

DRUGS (1)
  1. NPLATE [Suspect]
     Active Substance: ROMIPLOSTIM
     Indication: THROMBOCYTOPENIA
     Dosage: UNK
     Route: 065

REACTIONS (8)
  - Asthenia [Unknown]
  - Apathy [Unknown]
  - Headache [Unknown]
  - Abdominal pain [Unknown]
  - Sleep disorder [Unknown]
  - Arthralgia [Unknown]
  - Pain in extremity [Unknown]
  - Liver disorder [Unknown]
